FAERS Safety Report 21643970 (Version 1)
Quarter: 2022Q4

REPORT INFORMATION
  Report Type: Spontaneous
  Country: US (occurrence: None)
  Receive Date: 20221125
  Receipt Date: 20221125
  Transmission Date: 20230112
  Serious: Yes (Other)
  Sender: FDA-Public Use
  Company Number: US-FARMAPROD-202211-2165

PATIENT
  Sex: Male

DRUGS (10)
  1. OXERVATE [Suspect]
     Active Substance: CENEGERMIN-BKBJ
     Indication: Ulcerative keratitis
     Route: 047
     Dates: start: 20221024
  2. VALACYCLOVIR [Concomitant]
     Active Substance: VALACYCLOVIR HYDROCHLORIDE
  3. VITAMIN D3 [Concomitant]
     Active Substance: CHOLECALCIFEROL
  4. PROBENECID [Concomitant]
     Active Substance: PROBENECID
  5. ALLOPURINOL [Concomitant]
     Active Substance: ALLOPURINOL
  6. KLOR-CON M10 [Concomitant]
     Active Substance: POTASSIUM CHLORIDE
     Dosage: SUSTAINED ACTION
  7. PRAVASTATIN SODIUM [Concomitant]
     Active Substance: PRAVASTATIN SODIUM
  8. OMEPRAZOLE [Concomitant]
     Active Substance: OMEPRAZOLE
     Dosage: DELAYED RELEASE
  9. METOPROLOL SUCCINATE [Concomitant]
     Active Substance: METOPROLOL SUCCINATE
  10. ASPIRIN [Concomitant]
     Active Substance: ASPIRIN

REACTIONS (5)
  - Eye infection bacterial [Unknown]
  - Vitreous floaters [Unknown]
  - Photophobia [Not Recovered/Not Resolved]
  - Eye pain [Unknown]
  - Eye pruritus [Unknown]
